FAERS Safety Report 8448564-5 (Version None)
Quarter: 2012Q2

REPORT INFORMATION
  Report Type: 
  Country: None (occurrence: None)
  Receive Date: 20120619
  Receipt Date: 20120604
  Transmission Date: 20120825
  Serious: Yes (Other)
  Sender: FDA-Public Use
  Company Number: DE-JUTA GMBH-2012-09988

PATIENT
  Age: 37 Year
  Sex: Male

DRUGS (3)
  1. AZATHIOPRINE [Suspect]
     Indication: ORGAN TRANSPLANT
     Dosage: 100 MG, DAILY
     Route: 065
  2. PREDNISOLONE [Suspect]
     Indication: ORGAN TRANSPLANT
     Dosage: 2.5 MG, DAILY
     Route: 065
  3. CYCLOSPORINE [Suspect]
     Indication: ORGAN TRANSPLANT
     Dosage: 100 MG, DAILY
     Route: 065

REACTIONS (2)
  - LYMPHOPROLIFERATIVE DISORDER [None]
  - PLASMABLASTIC LYMPHOMA [None]
